FAERS Safety Report 21942578 (Version 1)
Quarter: 2023Q1

REPORT INFORMATION
  Report Type: Report from Study
  Country: US (occurrence: US)
  Receive Date: 20230202
  Receipt Date: 20230202
  Transmission Date: 20230417
  Serious: No
  Sender: FDA-Public Use
  Company Number: US-EXELIXIS-CABO-22058068

PATIENT
  Sex: Female

DRUGS (2)
  1. CABOMETYX [Suspect]
     Active Substance: CABOZANTINIB S-MALATE
     Indication: Renal cancer
     Dosage: 40 MG, QD
     Route: 048
     Dates: start: 20221028, end: 20221118
  2. CABOMETYX [Suspect]
     Active Substance: CABOZANTINIB S-MALATE
     Indication: Intestinal obstruction
     Dosage: 20 MG, QD
     Route: 048

REACTIONS (10)
  - Gingival swelling [Unknown]
  - Sensitive skin [Unknown]
  - Vulvovaginal burning sensation [Unknown]
  - Oral discomfort [Unknown]
  - Nausea [Unknown]
  - Fatigue [Unknown]
  - Hypertension [Unknown]
  - Mucosal inflammation [Unknown]
  - Decreased appetite [Unknown]
  - Vomiting [Unknown]
